FAERS Safety Report 13656797 (Version 1)
Quarter: 2017Q2

REPORT INFORMATION
  Report Type: Spontaneous
  Country: GB (occurrence: GB)
  Receive Date: 20170615
  Receipt Date: 20170615
  Transmission Date: 20170830
  Serious: No
  Sender: FDA-Public Use
  Company Number: GB-ALLERGAN-1702446US

PATIENT
  Age: 7 Year

DRUGS (1)
  1. OXYBUTYNIN UNK [Suspect]
     Active Substance: OXYBUTYNIN
     Indication: HYPERTONIC BLADDER
     Dosage: HALF A PATCH EVERY 3-4 DAYS
     Route: 062

REACTIONS (1)
  - Off label use [Unknown]
